FAERS Safety Report 10394036 (Version 1)
Quarter: 2014Q3

REPORT INFORMATION
  Report Type: Spontaneous
  Country: DE (occurrence: DE)
  Receive Date: 20140819
  Receipt Date: 20140819
  Transmission Date: 20150326
  Serious: Yes (Hospitalization)
  Sender: FDA-Public Use
  Company Number: DE-TEVA-501844GER

PATIENT
  Age: 53 Year
  Sex: Male
  Weight: 85 kg

DRUGS (1)
  1. TERBINAFINE [Suspect]
     Active Substance: TERBINAFINE
     Indication: ONYCHOMYCOSIS
     Route: 048
     Dates: start: 20140729, end: 20140729

REACTIONS (5)
  - Anxiety [Recovering/Resolving]
  - Abdominal pain upper [Recovering/Resolving]
  - Restlessness [Recovering/Resolving]
  - Hyperhidrosis [Recovering/Resolving]
  - Nausea [Recovering/Resolving]

NARRATIVE: CASE EVENT DATE: 20140729
